FAERS Safety Report 14416721 (Version 1)
Quarter: 2018Q1

REPORT INFORMATION
  Report Type: Report from Study
  Country: CN (occurrence: CN)
  Receive Date: 20180122
  Receipt Date: 20180122
  Transmission Date: 20180509
  Serious: Yes (Other)
  Sender: FDA-Public Use
  Company Number: CN-ASTELLAS-2017US050494

PATIENT
  Age: 76 Year
  Sex: Female

DRUGS (1)
  1. ERLOTINIB [Suspect]
     Active Substance: ERLOTINIB
     Indication: NON-SMALL CELL LUNG CANCER
     Route: 048
     Dates: start: 20140929

REACTIONS (11)
  - Pelvic fracture [Unknown]
  - Anal incontinence [Unknown]
  - Fall [Unknown]
  - Rash [Unknown]
  - Urinary tract infection [Unknown]
  - Urinary incontinence [Unknown]
  - Pain [Unknown]
  - Abdominal discomfort [Unknown]
  - Immobile [Unknown]
  - Dizziness [Unknown]
  - Cough [Unknown]

NARRATIVE: CASE EVENT DATE: 20141003
